FAERS Safety Report 11003661 (Version 2)
Quarter: 2015Q2

REPORT INFORMATION
  Report Type: Report from Study
  Country: US (occurrence: US)
  Receive Date: 20150409
  Receipt Date: 20150427
  Transmission Date: 20150821
  Serious: Yes (Death, Hospitalization)
  Sender: FDA-Public Use
  Company Number: US-BIOGENIDEC-2015BI044939

PATIENT
  Age: 73 Year
  Sex: Female

DRUGS (2)
  1. AVONEX [Suspect]
     Active Substance: INTERFERON BETA-1A
     Indication: MULTIPLE SCLEROSIS
     Route: 030
     Dates: start: 20100110
  2. BOTOX [Concomitant]
     Active Substance: ONABOTULINUMTOXINA
     Indication: AUTOMATIC BLADDER

REACTIONS (6)
  - Bladder transitional cell carcinoma metastatic [Fatal]
  - Blood urine present [Unknown]
  - Speech disorder [Unknown]
  - Asthenia [Unknown]
  - Balance disorder [Unknown]
  - Gait disturbance [Unknown]

NARRATIVE: CASE EVENT DATE: 201404
